FAERS Safety Report 19226493 (Version 1)
Quarter: 2021Q2

REPORT INFORMATION
  Report Type: Other
  Country: GB (occurrence: GB)
  Receive Date: 20210505
  Receipt Date: 20210505
  Transmission Date: 20210717
  Serious: Yes (Disabling)
  Sender: FDA-Public Use
  Company Number: GB-LUPIN PHARMACEUTICALS INC.-2021-05733

PATIENT
  Age: 22 Year
  Sex: Male
  Weight: 62 kg

DRUGS (2)
  1. CONCERTA [Concomitant]
     Active Substance: METHYLPHENIDATE HYDROCHLORIDE
     Indication: PRODUCT USED FOR UNKNOWN INDICATION
     Dosage: 1 DOSAGE FORM, QD, EACH MORNING
     Route: 065
     Dates: start: 20200701
  2. SERTRALINE HYDROCHLORIDE TABLETS [Suspect]
     Active Substance: SERTRALINE HYDROCHLORIDE
     Indication: ANXIETY
     Dosage: 50 MILLIGRAM, QD
     Route: 065
     Dates: start: 20200715

REACTIONS (2)
  - Vomiting [Recovered/Resolved]
  - Nausea [Recovered/Resolved]

NARRATIVE: CASE EVENT DATE: 20200801
